FAERS Safety Report 7102621-4 (Version None)
Quarter: 2010Q4

REPORT INFORMATION
  Report Type: 
  Country: None (occurrence: None)
  Receive Date: 20101115
  Receipt Date: 20101104
  Transmission Date: 20110411
  Serious: Yes (Death)
  Sender: FDA-Public Use
  Company Number: B0683405A

PATIENT
  Sex: Male
  Weight: 57 kg

DRUGS (78)
  1. ALKERAN [Suspect]
     Indication: CORD BLOOD TRANSPLANT THERAPY
     Dosage: 22.5MGM2 PER DAY
     Route: 042
     Dates: start: 20050525, end: 20050525
  2. FLUDARA [Suspect]
     Indication: CORD BLOOD TRANSPLANT THERAPY
     Dosage: 40MGM2 PER DAY
     Route: 042
     Dates: start: 20050520, end: 20050522
  3. GRAN [Concomitant]
     Dates: start: 20050527, end: 20050626
  4. GRAN [Concomitant]
     Dates: start: 20050516, end: 20050519
  5. GRAN [Concomitant]
     Dates: start: 20050526, end: 20050531
  6. GRAN [Concomitant]
     Dates: start: 20050616, end: 20050629
  7. CYCLOSPORINE [Concomitant]
     Indication: IMMUNOSUPPRESSION
     Dosage: 140MGM2 PER DAY
     Route: 042
     Dates: start: 20050525, end: 20050816
  8. PURSENNID [Concomitant]
     Route: 048
     Dates: start: 20050530, end: 20050530
  9. FUROSEMIDE [Concomitant]
     Route: 048
     Dates: start: 20050527, end: 20050527
  10. FUROSEMIDE [Concomitant]
     Route: 048
     Dates: start: 20050530, end: 20050530
  11. URSO 250 [Concomitant]
     Route: 048
     Dates: start: 20050520, end: 20050520
  12. URSO 250 [Concomitant]
     Route: 048
     Dates: start: 20050602, end: 20050602
  13. BAKTAR [Concomitant]
     Route: 048
     Dates: start: 20050511, end: 20050511
  14. BAKTAR [Concomitant]
     Route: 048
     Dates: start: 20050518, end: 20050518
  15. BAKTAR [Concomitant]
     Route: 048
     Dates: start: 20050729, end: 20050729
  16. ITRIZOLE [Concomitant]
     Route: 048
     Dates: start: 20050511, end: 20050511
  17. LEVOFLOXACIN [Concomitant]
     Route: 048
     Dates: start: 20050511, end: 20050511
  18. ENTERONON-R [Concomitant]
     Route: 048
     Dates: start: 20050523, end: 20050523
  19. TAKEPRON [Concomitant]
     Route: 048
     Dates: start: 20050523, end: 20050523
  20. TAKEPRON [Concomitant]
     Route: 048
     Dates: start: 20050730, end: 20050730
  21. ZOVIRAX [Concomitant]
     Route: 048
     Dates: start: 20050525, end: 20050525
  22. LOXONIN [Concomitant]
     Route: 048
     Dates: start: 20050511, end: 20050511
  23. CYLOCIDE [Concomitant]
     Route: 042
     Dates: start: 20050511, end: 20050511
  24. CYLOCIDE [Concomitant]
     Route: 042
     Dates: start: 20050512, end: 20050513
  25. CYLOCIDE [Concomitant]
     Route: 042
     Dates: start: 20050514, end: 20050514
  26. FUNGUARD [Concomitant]
     Route: 042
     Dates: start: 20050511, end: 20050512
  27. ASPARA K [Concomitant]
     Route: 042
     Dates: start: 20050513, end: 20050514
  28. CALCICOL [Concomitant]
     Route: 042
     Dates: start: 20050515, end: 20050515
  29. POTACOL-R [Concomitant]
     Route: 042
     Dates: start: 20050518, end: 20050518
  30. GLYCEOL [Concomitant]
     Route: 042
     Dates: start: 20050523, end: 20050523
  31. ALBUMINAR [Concomitant]
     Route: 042
     Dates: start: 20050524, end: 20050524
  32. MEYLON [Concomitant]
     Route: 042
     Dates: start: 20050525, end: 20050525
  33. SAXIZON [Concomitant]
     Route: 042
     Dates: start: 20050526, end: 20050526
  34. GLUCOSE [Concomitant]
     Route: 042
     Dates: start: 20050527, end: 20050527
  35. GLUCOSE [Concomitant]
     Route: 042
     Dates: start: 20050529, end: 20050529
  36. MEROPEN [Concomitant]
     Route: 042
     Dates: start: 20050528, end: 20050528
  37. VANCOMYCIN [Concomitant]
     Route: 042
     Dates: start: 20050530, end: 20050531
  38. HEPARIN [Concomitant]
     Route: 042
     Dates: start: 20050518, end: 20050521
  39. HEPARIN [Concomitant]
     Route: 042
     Dates: start: 20050522, end: 20050522
  40. HEPARIN [Concomitant]
     Route: 042
     Dates: start: 20050523, end: 20050523
  41. HEPARIN [Concomitant]
     Route: 042
     Dates: start: 20050524, end: 20050525
  42. HEPARIN [Concomitant]
     Route: 042
     Dates: start: 20050526, end: 20050526
  43. HEPARIN [Concomitant]
     Route: 042
     Dates: start: 20050527, end: 20050531
  44. HYPO ETHANOL [Concomitant]
     Route: 061
     Dates: start: 20050518, end: 20050518
  45. LAXOBERON [Concomitant]
     Route: 048
     Dates: start: 20050602, end: 20050602
  46. TELEMINSOFT [Concomitant]
     Route: 054
     Dates: start: 20050606, end: 20050606
  47. TELEMINSOFT [Concomitant]
     Route: 054
     Dates: start: 20050612, end: 20050612
  48. VOLTAREN [Concomitant]
     Route: 054
     Dates: start: 20050602, end: 20050602
  49. VOLTAREN [Concomitant]
     Route: 054
     Dates: start: 20050606, end: 20050606
  50. VOLTAREN [Concomitant]
     Route: 054
     Dates: start: 20050607, end: 20050609
  51. VOLTAREN [Concomitant]
     Route: 054
     Dates: start: 20050613, end: 20050613
  52. VOLTAREN [Concomitant]
     Route: 054
     Dates: start: 20050615, end: 20050615
  53. VOLTAREN [Concomitant]
     Route: 054
     Dates: start: 20050622, end: 20050622
  54. VOLTAREN [Concomitant]
     Route: 054
     Dates: start: 20050703, end: 20050703
  55. KENEI G [Concomitant]
     Route: 054
     Dates: start: 20050607, end: 20050607
  56. KENEI G [Concomitant]
     Route: 054
     Dates: start: 20050610, end: 20050610
  57. KENEI G [Concomitant]
     Route: 054
     Dates: start: 20050616, end: 20050616
  58. KENEI G [Concomitant]
     Route: 054
     Dates: start: 20050622, end: 20050622
  59. LEVOFLOXACIN [Concomitant]
     Route: 031
     Dates: start: 20050608, end: 20050608
  60. XYLOCAINE [Concomitant]
     Route: 061
     Dates: start: 20050613, end: 20050613
  61. DISTILLED WATER [Concomitant]
     Dates: start: 20050613, end: 20050613
  62. GLYCERIN [Concomitant]
     Route: 054
     Dates: start: 20050621, end: 20050621
  63. PREDOPA [Concomitant]
     Route: 042
     Dates: start: 20050602, end: 20050602
  64. ZYLORIC [Concomitant]
     Route: 048
     Dates: start: 20050728, end: 20050728
  65. ENSURE [Concomitant]
     Route: 048
     Dates: start: 20050722, end: 20050722
  66. LAXOBERON [Concomitant]
     Route: 048
     Dates: start: 20050726, end: 20050726
  67. MOHRUS TAPE [Concomitant]
     Route: 062
     Dates: start: 20050719, end: 20050719
  68. METILON [Concomitant]
     Dates: start: 20050708, end: 20050708
  69. METILON [Concomitant]
     Dates: start: 20050710, end: 20050711
  70. METILON [Concomitant]
     Dates: start: 20050712, end: 20050712
  71. METILON [Concomitant]
     Dates: start: 20050714, end: 20050715
  72. METILON [Concomitant]
     Dates: start: 20050716, end: 20050716
  73. METILON [Concomitant]
     Dates: start: 20050722, end: 20050722
  74. METILON [Concomitant]
     Dates: start: 20050723, end: 20050723
  75. METILON [Concomitant]
     Dates: start: 20050724, end: 20050724
  76. METILON [Concomitant]
     Dates: start: 20050726, end: 20050726
  77. NEUART [Concomitant]
     Route: 042
     Dates: start: 20050701, end: 20050701
  78. CONCLYTE-MG [Concomitant]
     Route: 042
     Dates: start: 20050702, end: 20050702

REACTIONS (1)
  - FUNGAEMIA [None]
